FAERS Safety Report 7440728-2 (Version None)
Quarter: 2011Q2

REPORT INFORMATION
  Report Type: 
  Country: None (occurrence: None)
  Receive Date: 20110427
  Receipt Date: 20110425
  Transmission Date: 20111010
  Serious: Yes (Other)
  Sender: FDA-Public Use
  Company Number: KR-PFIZER INC-2011088848

PATIENT
  Age: 67 Year
  Sex: Male

DRUGS (2)
  1. PREGABALIN [Suspect]
     Dosage: 450 MG/DAY
  2. PREGABALIN [Suspect]
     Dosage: 300 MG/DAY

REACTIONS (5)
  - DYSARTHRIA [None]
  - NEUROTOXICITY [None]
  - APHASIA [None]
  - MYOCLONUS [None]
  - MENTAL IMPAIRMENT [None]
